FAERS Safety Report 24401666 (Version 1)
Quarter: 2024Q4

REPORT INFORMATION
  Report Type: Spontaneous
  Country: CN (occurrence: CN)
  Receive Date: 20241007
  Receipt Date: 20241007
  Transmission Date: 20250114
  Serious: Yes (Hospitalization)
  Sender: BEIGENE
  Company Number: CN-BEIGENE-BGN-2024-015488

PATIENT

DRUGS (3)
  1. TISLELIZUMAB [Suspect]
     Active Substance: TISLELIZUMAB
     Indication: Leiomyosarcoma
     Dosage: 200 MILLIGRAM D1, Q3WK
     Route: 041
     Dates: start: 20231018
  2. ERIBULIN [Concomitant]
     Active Substance: ERIBULIN
     Indication: Leiomyosarcoma
     Dosage: 1.7 MILLIGRAM D1,D8, Q3WK
     Dates: start: 20231018, end: 20231217
  3. CATEQUENTINIB [Concomitant]
     Active Substance: CATEQUENTINIB
     Indication: Leiomyosarcoma
     Dosage: 10 MILLIGRAM D1-D14, Q3WK
     Dates: start: 20231018, end: 20231217

REACTIONS (2)
  - Liver injury [Recovering/Resolving]
  - Rash [Unknown]

NARRATIVE: CASE EVENT DATE: 20240101
